FAERS Safety Report 7299758-6 (Version None)
Quarter: 2011Q1

REPORT INFORMATION
  Report Type: 
  Country: None (occurrence: None)
  Receive Date: 20110217
  Receipt Date: 20110202
  Transmission Date: 20110831
  Serious: Yes (Death, Life-Threatening, Other)
  Sender: FDA-Public Use
  Company Number: JP-TYCO HEALTHCARE/MALLINCKRODT-T201100137

PATIENT
  Sex: Male
  Weight: 63.9 kg

DRUGS (10)
  1. METHADONE [Suspect]
     Dosage: 20 MG, QD
     Route: 048
     Dates: start: 20110124, end: 20110124
  2. ZYLORIC                            /00003301/ [Concomitant]
     Dosage: 200 MG, QD
     Dates: start: 20101012, end: 20110125
  3. TRYPTANOL                          /00002201/ [Concomitant]
     Dosage: 25 MG, S.I.D.
     Dates: start: 20100731, end: 20110125
  4. ISODINE [Concomitant]
     Dosage: OPTIMAL DOSE
     Dates: start: 20110119
  5. METHADONE [Suspect]
     Indication: CANCER PAIN
     Dosage: 30 MG, QD
     Route: 048
     Dates: start: 20110121, end: 20110123
  6. OXYCODONE HCL [Concomitant]
     Dosage: 30 MG, PRN
     Dates: end: 20110122
  7. GABAPENTIN [Concomitant]
     Dosage: 800 MG, QD
     Dates: start: 20100801, end: 20110125
  8. LOXOPROFEN [Suspect]
     Dosage: 60 UNK, TID
     Dates: start: 20100708, end: 20110125
  9. METHADONE [Suspect]
     Dosage: 10 MG, QD
     Route: 048
     Dates: start: 20110125, end: 20110125
  10. POLAPREZINC [Concomitant]
     Dosage: 75 MG, BID
     Dates: end: 20110125

REACTIONS (5)
  - CARDIO-RESPIRATORY ARREST [None]
  - URINARY TRACT INFECTION [None]
  - HAEMATURIA [None]
  - RENAL FAILURE [None]
  - OVERDOSE [None]
